FAERS Safety Report 13508750 (Version 1)
Quarter: 2017Q2

REPORT INFORMATION
  Report Type: Spontaneous
  Country: US (occurrence: US)
  Receive Date: 20170503
  Receipt Date: 20170503
  Transmission Date: 20170830
  Serious: No
  Sender: FDA-Public Use
  Company Number: US-ASTRAZENECA-2016SF25427

PATIENT
  Age: 722 Month
  Sex: Female
  Weight: 83 kg

DRUGS (2)
  1. BYDUREON [Suspect]
     Active Substance: EXENATIDE
     Indication: GLYCOSYLATED HAEMOGLOBIN INCREASED
     Dosage: ONCE A WEEK
     Route: 065
     Dates: start: 201607
  2. BYDUREON [Suspect]
     Active Substance: EXENATIDE
     Indication: TYPE 2 DIABETES MELLITUS
     Dosage: ONCE A WEEK
     Route: 065
     Dates: start: 201607

REACTIONS (4)
  - Injection site pain [Unknown]
  - Injection site pruritus [Unknown]
  - Injection site erythema [Unknown]
  - Injection site mass [Unknown]

NARRATIVE: CASE EVENT DATE: 201607
